FAERS Safety Report 6370576-6 (Version None)
Quarter: 2009Q3

REPORT INFORMATION
  Report Type: 
  Country: None (occurrence: None)
  Receive Date: 20090923
  Receipt Date: 20090915
  Transmission Date: 20100115
  Serious: Yes (Hospitalization)
  Sender: FDA-Public Use
  Company Number: B0589802A

PATIENT
  Sex: Male

DRUGS (6)
  1. ARIXTRA [Suspect]
     Indication: THROMBOSIS PROPHYLAXIS
     Dosage: 2.5MG PER DAY
     Route: 058
     Dates: start: 20090808, end: 20090810
  2. UNKNOWN DRUG [Concomitant]
     Route: 042
     Dates: start: 20090805, end: 20090808
  3. UNKNOWN DRUG [Concomitant]
     Dosage: 300IU3 PER DAY
     Route: 042
     Dates: start: 20090805, end: 20090811
  4. ELASPOL [Concomitant]
     Dosage: 300MG PER DAY
     Route: 042
     Dates: start: 20090805, end: 20090808
  5. GASTER [Concomitant]
     Dosage: 40MG PER DAY
     Route: 065
     Dates: start: 20090805, end: 20090809
  6. ZOSYN [Concomitant]
     Dosage: 13.5G PER DAY
     Route: 042
     Dates: start: 20090805, end: 20090809

REACTIONS (4)
  - ACUTE RESPIRATORY DISTRESS SYNDROME [None]
  - FAILURE TO ANASTOMOSE [None]
  - POST PROCEDURAL HAEMATOMA [None]
  - POSTOPERATIVE ABSCESS [None]
